FAERS Safety Report 8302356-6 (Version None)
Quarter: 2012Q2

REPORT INFORMATION
  Report Type: 
  Country: None (occurrence: None)
  Receive Date: 20120420
  Receipt Date: 20120413
  Transmission Date: 20120825
  Serious: Yes (Other)
  Sender: FDA-Public Use
  Company Number: DK-JNJFOC-20120309124

PATIENT
  Sex: Male

DRUGS (4)
  1. VALDOXAN (AGOMELATINE) [Concomitant]
     Indication: PRODUCT USED FOR UNKNOWN INDICATION
     Dosage: 2 MAX
     Route: 065
  2. PALIPERIDONE [Suspect]
     Route: 030
     Dates: start: 20110708, end: 20120307
  3. PALIPERIDONE [Suspect]
     Indication: SCHIZOPHRENIA
     Route: 030
  4. SEROQUEL [Concomitant]
     Indication: PRODUCT USED FOR UNKNOWN INDICATION
     Dosage: 2 MAXIMUM
     Route: 065

REACTIONS (2)
  - INAPPROPRIATE SCHEDULE OF DRUG ADMINISTRATION [None]
  - DYSTONIA [None]
